FAERS Safety Report 20374305 (Version 2)
Quarter: 2022Q1

REPORT INFORMATION
  Report Type: Spontaneous
  Country: JP (occurrence: JP)
  Receive Date: 20220125
  Receipt Date: 20220317
  Transmission Date: 20220423
  Serious: No
  Sender: FDA-Public Use
  Company Number: JP-UCBJ-CD202200618UCBPHAPROD

PATIENT
  Age: 87 Year
  Sex: Female
  Weight: 45 kg

DRUGS (7)
  1. VIMPAT [Suspect]
     Active Substance: LACOSAMIDE
     Indication: Partial seizures with secondary generalisation
     Dosage: 100MG DAILY
     Route: 048
     Dates: start: 20210501, end: 20210511
  2. VIMPAT [Suspect]
     Active Substance: LACOSAMIDE
     Indication: Focal dyscognitive seizures
     Dosage: 200MG DAILY
     Route: 048
     Dates: start: 20210512
  3. LEVETIRACETAM [Suspect]
     Active Substance: LEVETIRACETAM
     Indication: Partial seizures with secondary generalisation
     Dosage: 1000MG UNK
     Route: 048
     Dates: start: 20210501
  4. LEVETIRACETAM [Suspect]
     Active Substance: LEVETIRACETAM
     Indication: Focal dyscognitive seizures
  5. MYSTAN [Concomitant]
     Active Substance: CLOBAZAM
     Indication: Partial seizures with secondary generalisation
     Route: 048
     Dates: start: 20210430
  6. MYSTAN [Concomitant]
     Active Substance: CLOBAZAM
     Indication: Focal dyscognitive seizures
  7. VONOPRAZAN FUMARATE [Concomitant]
     Active Substance: VONOPRAZAN FUMARATE
     Indication: Prophylaxis
     Route: 048
     Dates: start: 20210501

REACTIONS (1)
  - Drug ineffective [Unknown]
